FAERS Safety Report 24116375 (Version 2)
Quarter: 2024Q3

REPORT INFORMATION
  Report Type: Spontaneous
  Country: US (occurrence: US)
  Receive Date: 20240722
  Receipt Date: 20240722
  Transmission Date: 20241017
  Serious: Yes (Other)
  Sender: ASTELLAS
  Company Number: US-ASTELLAS-2023US032249

PATIENT
  Sex: Female

DRUGS (2)
  1. MYRBETRIQ [Suspect]
     Active Substance: MIRABEGRON
     Indication: Hypertonic bladder
     Route: 065
  2. MYRBETRIQ [Suspect]
     Active Substance: MIRABEGRON
     Indication: Hypertonic bladder
     Dosage: 50 MG, UNKNOWN FREQ. (TOOK 5 TABLETS)
     Route: 065

REACTIONS (3)
  - Dysphonia [Unknown]
  - Kidney infection [Unknown]
  - Cough [Unknown]

NARRATIVE: CASE EVENT DATE: 20231023
